FAERS Safety Report 5515700-X (Version None)
Quarter: 2007Q4

REPORT INFORMATION
  Report Type: 
  Country: None (occurrence: None)
  Receive Date: 20071113
  Receipt Date: 20070830
  Transmission Date: 20080405
  Serious: No
  Sender: FDA-Public Use
  Company Number: A0677785A

PATIENT
  Age: 80 Year
  Sex: Female

DRUGS (4)
  1. COREG [Suspect]
     Route: 048
     Dates: start: 20030701
  2. LIPITOR [Concomitant]
  3. ATACAND [Concomitant]
  4. FUROSEMIDE [Concomitant]

REACTIONS (3)
  - ASTHENIA [None]
  - DIZZINESS [None]
  - FATIGUE [None]
